FAERS Safety Report 6645212 (Version 2)
Quarter: 2012Q4

REPORT INFORMATION
  Report Type: 
  Country: GB (occurrence: GB)
  Receive Date: 20080521
  Receipt Date: 20121026
  Transmission Date: 20130627
  Serious: Yes (Other)
  Sender: FDA-Public Use
  Company Number: PHHO2007GB04131

PATIENT
  Age: 38 Year
  Sex: Female
  Weight: 45 kg

DRUGS (3)
  1. ICL670A [Suspect]
     Indication: BLOOD IRON INCREASED
     Dosage: 875 mg, QD
     Route: 048
     Dates: start: 20061019, end: 20061124
  2. ICL670A [Suspect]
     Dosage: No treatment
     Dates: start: 20061125, end: 20061221
  3. ICL670A [Suspect]
     Dosage: 375 mg, QD
     Route: 048
     Dates: start: 20061222, end: 20070220

REACTIONS (7)
  - Angioedema [Recovered/Resolved]
  - Periorbital oedema [Recovered/Resolved]
  - Vision blurred [Recovered/Resolved]
  - Parotid gland enlargement [Recovered/Resolved]
  - Intraocular pressure increased [Recovered/Resolved]
  - Amylase increased [Recovered/Resolved]
  - Rash maculo-papular [Recovered/Resolved]
